FAERS Safety Report 21077651 (Version 2)
Quarter: 2022Q3

REPORT INFORMATION
  Report Type: Report from Study
  Country: US (occurrence: US)
  Receive Date: 20220713
  Receipt Date: 20220722
  Transmission Date: 20221026
  Serious: Yes (Other)
  Sender: FDA-Public Use
  Company Number: US-JAZZ-2022-US-017365

PATIENT
  Age: 24 Year
  Sex: Male

DRUGS (4)
  1. XYWAV [Suspect]
     Active Substance: CALCIUM OXYBATE\MAGNESIUM OXYBATE\POTASSIUM OXYBATE\SODIUM OXYBATE
     Indication: Hypersomnia
     Dosage: 2.25 GRAM, BID NIGHTLY
     Route: 048
  2. XYWAV [Suspect]
     Active Substance: CALCIUM OXYBATE\MAGNESIUM OXYBATE\POTASSIUM OXYBATE\SODIUM OXYBATE
     Dosage: 3 GRAM, BID
     Route: 048
  3. XYWAV [Suspect]
     Active Substance: CALCIUM OXYBATE\MAGNESIUM OXYBATE\POTASSIUM OXYBATE\SODIUM OXYBATE
     Dosage: 3.75 GRAM, BID
     Route: 048
  4. BENADRYL ALLERGY RELIEF [Concomitant]
     Indication: Product used for unknown indication
     Dosage: UNK
     Dates: start: 20220616

REACTIONS (8)
  - Suicidal ideation [Recovering/Resolving]
  - Depression [Unknown]
  - Surgery [Unknown]
  - Anxiety [Unknown]
  - Product prescribing issue [Unknown]
  - Abdominal pain upper [Unknown]
  - Paranoia [Unknown]
  - Product storage error [Unknown]

NARRATIVE: CASE EVENT DATE: 20220520
